FAERS Safety Report 24075695 (Version 1)
Quarter: 2024Q3

REPORT INFORMATION
  Report Type: Spontaneous
  Country: US (occurrence: US)
  Receive Date: 20240710
  Receipt Date: 20240710
  Transmission Date: 20241017
  Serious: Yes (Other)
  Sender: RANBAXY
  Company Number: US-SUN PHARMACEUTICAL INDUSTRIES LTD-2024R1-455661

PATIENT
  Age: 43 Year
  Sex: Female

DRUGS (1)
  1. VERAPAMIL [Suspect]
     Active Substance: VERAPAMIL HYDROCHLORIDE
     Indication: Left ventricular dysfunction
     Dosage: UNK
     Route: 065

REACTIONS (4)
  - Overdose [Unknown]
  - Hypotension [Unknown]
  - Vasoplegia syndrome [Unknown]
  - Hypoxia [Recovering/Resolving]
